FAERS Safety Report 18991329 (Version 2)
Quarter: 2021Q1

REPORT INFORMATION
  Report Type: Report from Study
  Country: CO (occurrence: CO)
  Receive Date: 20210310
  Receipt Date: 20210330
  Transmission Date: 20210420
  Serious: Yes (Disabling, Other)
  Sender: FDA-Public Use
  Company Number: CO-AUROBINDO-AUR-APL-2020-039117

PATIENT
  Age: 58 Year
  Sex: Female

DRUGS (3)
  1. PARACETAMOL [Concomitant]
     Active Substance: ACETAMINOPHEN
     Indication: PRODUCT USED FOR UNKNOWN INDICATION
     Dosage: UNK
     Route: 065
  2. FOLOTYN [Suspect]
     Active Substance: PRALATREXATE
     Dosage: 40 MILLIGRAM
     Route: 065
  3. FOLOTYN [Suspect]
     Active Substance: PRALATREXATE
     Indication: PERIPHERAL T-CELL LYMPHOMA UNSPECIFIED
     Dosage: 50 MILLIGRAM, ON CYCLE 6
     Route: 042
     Dates: start: 20200506

REACTIONS (5)
  - Thrombophlebitis [Unknown]
  - Osteopenia [Not Recovered/Not Resolved]
  - Iatrogenic injury [Unknown]
  - Peripheral swelling [Unknown]
  - Inflammation [Unknown]

NARRATIVE: CASE EVENT DATE: 20210303
